FAERS Safety Report 24436485 (Version 1)
Quarter: 2024Q4

REPORT INFORMATION
  Report Type: Spontaneous
  Country: US (occurrence: US)
  Receive Date: 20241015
  Receipt Date: 20241015
  Transmission Date: 20250115
  Serious: Yes (Hospitalization, Other)
  Sender: AZURITY PHARMACEUTICALS
  Company Number: US-AZURITY PHARMACEUTICALS, INC.-AZR202409-000828

PATIENT
  Age: 68 Year
  Sex: Male

DRUGS (6)
  1. MYCOPHENOLATE MOFETIL [Suspect]
     Active Substance: MYCOPHENOLATE MOFETIL
     Indication: Erythrodermic psoriasis
     Dosage: UNK
     Route: 065
  2. TRIAMCINOLONE [Suspect]
     Active Substance: TRIAMCINOLONE
     Indication: Erythrodermic psoriasis
     Dosage: UNK
     Route: 061
  3. BETAMETHASONE [Suspect]
     Active Substance: BETAMETHASONE
     Indication: Erythrodermic psoriasis
     Dosage: UNK
     Route: 061
  4. PREDNISONE [Suspect]
     Active Substance: PREDNISONE
     Indication: Erythrodermic psoriasis
     Dosage: UNK
     Route: 065
  5. CYCLOSPORINE [Suspect]
     Active Substance: CYCLOSPORINE
     Indication: Erythrodermic psoriasis
     Dosage: 5 MG/KG/DAY IN 2 DIVIDED DOSES
     Route: 065
  6. ACITRETIN [Suspect]
     Active Substance: ACITRETIN
     Indication: Erythrodermic psoriasis
     Dosage: 25 MILLIGRAM, QD
     Route: 065

REACTIONS (8)
  - Shock haemorrhagic [Unknown]
  - Aneurysm ruptured [Unknown]
  - Embolism arterial [Unknown]
  - Endocarditis [Unknown]
  - Infective aneurysm [Unknown]
  - Septic shock [Unknown]
  - Candida sepsis [Unknown]
  - Pseudomonal sepsis [Unknown]
